FAERS Safety Report 5888251-0 (Version None)
Quarter: 2008Q3

REPORT INFORMATION
  Report Type: 
  Country: None (occurrence: None)
  Receive Date: 20080916
  Receipt Date: 20080916
  Transmission Date: 20090109
  Serious: Yes (Hospitalization)
  Sender: FDA-Public Use
  Company Number: None

PATIENT
  Sex: Female
  Weight: 87.0906 kg

DRUGS (7)
  1. CYCLOPHOSPHAMIDE [Suspect]
     Indication: DIFFUSE LARGE B-CELL LYMPHOMA
     Dosage: EVERY 2 WEEKS IV
     Route: 042
  2. DOXORUBICIN HYDROCHLORIDE [Suspect]
     Dosage: EVERY 2 WEEKS IV
     Route: 042
  3. LEUKINE [Concomitant]
  4. COLACE [Concomitant]
  5. TYLENOL (CAPLET) [Concomitant]
  6. PREVACHOL [Concomitant]
  7. DITROPAN [Concomitant]

REACTIONS (3)
  - DEHYDRATION [None]
  - NAUSEA [None]
  - VOMITING [None]
